FAERS Safety Report 5252686-X (Version None)
Quarter: 2007Q1

REPORT INFORMATION
  Report Type: 
  Country: None (occurrence: None)
  Receive Date: 20070301
  Receipt Date: 20061108
  Transmission Date: 20070707
  Serious: No
  Sender: FDA-Public Use
  Company Number: US-GLAXOSMITHKLINE-A0626801A

PATIENT
  Age: 40 Year
  Sex: Female

DRUGS (4)
  1. LAMICTAL [Suspect]
     Dosage: 200MG PER DAY
     Route: 048
     Dates: start: 20060527, end: 20061019
  2. ABILIFY [Concomitant]
     Dosage: 40MG PER DAY
  3. LEXAPRO [Concomitant]
     Dosage: 10MG PER DAY
  4. SONATA [Concomitant]
     Dosage: 10MG PER DAY

REACTIONS (2)
  - RASH [None]
  - URTICARIA [None]
